FAERS Safety Report 10467027 (Version 2)
Quarter: 2015Q2

REPORT INFORMATION
  Report Type: Report from Study
  Country: TR (occurrence: TR)
  Receive Date: 20140922
  Receipt Date: 20150409
  Transmission Date: 20150821
  Serious: Yes (Hospitalization, Congenital Anomaly)
  Sender: FDA-Public Use
  Company Number: TR-NOVOPROD-422562

PATIENT
  Sex: Female
  Weight: 2.56 kg

DRUGS (1)
  1. NOVORAPID [Suspect]
     Active Substance: INSULIN ASPART
     Indication: GESTATIONAL DIABETES
     Dosage: 22 U, QD
     Route: 064
     Dates: start: 20140506, end: 20140709

REACTIONS (3)
  - Cardiac septal defect [Unknown]
  - Foetal exposure during pregnancy [Recovered/Resolved]
  - Neonatal respiratory distress syndrome [Recovered/Resolved]

NARRATIVE: CASE EVENT DATE: 20140506
